FAERS Safety Report 9432148 (Version 1)
Quarter: 2013Q3

REPORT INFORMATION
  Report Type: Spontaneous
  Country: US (occurrence: US)
  Receive Date: 20130731
  Receipt Date: 20130731
  Transmission Date: 20140515
  Serious: No
  Sender: FDA-Public Use
  Company Number: US-PFIZER INC-2013222371

PATIENT
  Sex: Female

DRUGS (2)
  1. LYRICA [Suspect]
     Indication: NEURALGIA
     Dosage: 50 MG, 2X/DAY
  2. LYRICA [Suspect]
     Dosage: 75 MG, 2X/DAY

REACTIONS (3)
  - Dry mouth [Not Recovered/Not Resolved]
  - Somnolence [Recovering/Resolving]
  - Oedema peripheral [Unknown]
